FAERS Safety Report 9546984 (Version 1)
Quarter: 2013Q3

REPORT INFORMATION
  Report Type: Spontaneous
  Country: US (occurrence: None)
  Receive Date: 20130920
  Receipt Date: 20130920
  Transmission Date: 20140515
  Serious: No
  Sender: FDA-Public Use
  Company Number: None

PATIENT
  Sex: 0

DRUGS (2)
  1. LORATADINE ( LORATADINE) [Suspect]
     Dosage: 5 MG/ 5 ML BOTTLE 150 ML
  2. CLARITIN ( CLARITIN) [Suspect]
     Dosage: BOTTLE

REACTIONS (2)
  - Medication error [None]
  - Physical product label issue [None]
